FAERS Safety Report 10241901 (Version 1)
Quarter: 2014Q2

REPORT INFORMATION
  Report Type: Spontaneous
  Country: GB (occurrence: GB)
  Receive Date: 20140617
  Receipt Date: 20140617
  Transmission Date: 20141212
  Serious: Yes (Disabling)
  Sender: FDA-Public Use
  Company Number: GB-TEVA-487155ISR

PATIENT
  Age: 66 Year
  Sex: Male
  Weight: 79.37 kg

DRUGS (2)
  1. DICLOFENAC [Suspect]
     Indication: GOUT
     Route: 048
     Dates: start: 20140526
  2. OMEPRAZOLE [Concomitant]

REACTIONS (1)
  - Tinnitus [Not Recovered/Not Resolved]
